FAERS Safety Report 7080481-8 (Version None)
Quarter: 2010Q4

REPORT INFORMATION
  Report Type: 
  Country: None (occurrence: None)
  Receive Date: 20101103
  Receipt Date: 20101022
  Transmission Date: 20110411
  Serious: Yes (Life-Threatening, Other)
  Sender: FDA-Public Use
  Company Number: DE-BAYER-201042034GPV

PATIENT
  Age: 40 Year
  Sex: Female

DRUGS (4)
  1. SORAFENIB [Suspect]
     Indication: MYELOID LEUKAEMIA
     Dosage: TOTAL DAILY DOSE: 800 MG
  2. SORAFENIB [Suspect]
     Dosage: TOTAL DAILY DOSE: 400 MG
  3. CYCLOSPORINE [Concomitant]
     Indication: STEM CELL TRANSPLANT
  4. MYCOPHENOLATE MOFETIL [Concomitant]
     Indication: STEM CELL TRANSPLANT

REACTIONS (3)
  - CHRONIC GRAFT VERSUS HOST DISEASE [None]
  - HAEMATOTOXICITY [None]
  - THROMBOCYTOPENIA [None]
